FAERS Safety Report 21032644 (Version 1)
Quarter: 2022Q3

REPORT INFORMATION
  Report Type: Report from Study
  Country: CA (occurrence: CA)
  Receive Date: 20220701
  Receipt Date: 20220701
  Transmission Date: 20221027
  Serious: Yes (Hospitalization)
  Sender: FDA-Public Use
  Company Number: CA-NOVARTISPH-NVSC2021CA282909

PATIENT
  Sex: Male

DRUGS (3)
  1. PIRFENIDONE [Suspect]
     Active Substance: PIRFENIDONE
     Indication: Pulmonary fibrosis
     Dosage: UNK
     Route: 048
     Dates: start: 20210816
  2. PIRFENIDONE [Suspect]
     Active Substance: PIRFENIDONE
     Dosage: 3 TABLETS (267 MG), TID
     Route: 065
  3. PIRFENIDONE [Suspect]
     Active Substance: PIRFENIDONE
     Dosage: 2 CAPSULES (267 MG), TID
     Route: 048

REACTIONS (4)
  - Gastrointestinal haemorrhage [Unknown]
  - Forced vital capacity abnormal [Unknown]
  - Nausea [Unknown]
  - Decreased appetite [Unknown]
